FAERS Safety Report 17022709 (Version 2)
Quarter: 2019Q4

REPORT INFORMATION
  Report Type: Spontaneous
  Country: US (occurrence: US)
  Receive Date: 20191112
  Receipt Date: 20191230
  Transmission Date: 20200122
  Serious: Yes (Hospitalization)
  Sender: FDA-Public Use
  Company Number: US-PFIZER INC-2019479165

PATIENT
  Age: 79 Year
  Sex: Male
  Weight: 86.17 kg

DRUGS (1)
  1. THERMACARE ULTRA [Suspect]
     Active Substance: CAMPHOR (SYNTHETIC)\CAPSICUM OLEORESIN\MENTHOL\METHYL SALICYLATE
     Dosage: UNK

REACTIONS (3)
  - Abnormal behaviour [Unknown]
  - Confusional state [Unknown]
  - Sleep apnoea syndrome [Unknown]
